FAERS Safety Report 26181719 (Version 1)
Quarter: 2025Q4

REPORT INFORMATION
  Report Type: Spontaneous
  Country: EU (occurrence: EU)
  Receive Date: 20251221
  Receipt Date: 20251221
  Transmission Date: 20260118
  Serious: Yes (Other)
  Sender: PURDUE
  Company Number: EU-PURDUE-USA-2025-0323151

PATIENT
  Sex: Male

DRUGS (2)
  1. OXYCODONE HYDROCHLORIDE [Interacting]
     Active Substance: OXYCODONE HYDROCHLORIDE
     Indication: Neck pain
     Dosage: 10 MILLIGRAM, DAILY
     Route: 048
     Dates: start: 2025
  2. NALMEFENE HYDROCHLORIDE DIHYDRATE [Interacting]
     Active Substance: NALMEFENE HYDROCHLORIDE DIHYDRATE
     Indication: Product used for unknown indication
     Dosage: 18 MILLIGRAM, DAILY
     Route: 048
     Dates: start: 20251121

REACTIONS (3)
  - Compensatory sweating [Recovered/Resolved]
  - Agitation [Recovered/Resolved]
  - Myalgia [Recovered/Resolved]

NARRATIVE: CASE EVENT DATE: 20251121
